FAERS Safety Report 5759774-X (Version None)
Quarter: 2008Q2

REPORT INFORMATION
  Report Type: 
  Country: None (occurrence: None)
  Receive Date: 20080605
  Receipt Date: 20080602
  Transmission Date: 20081010
  Serious: Yes (Hospitalization)
  Sender: FDA-Public Use
  Company Number: B0520565A

PATIENT
  Age: 74 Year
  Sex: Male

DRUGS (4)
  1. SEREVENT [Suspect]
     Indication: CHRONIC OBSTRUCTIVE PULMONARY DISEASE
     Dosage: 50MCG TWICE PER DAY
     Route: 055
     Dates: start: 20071005
  2. SPIRIVA [Concomitant]
     Dosage: 1 PER DAY
     Route: 055
  3. MEPTIN AIR [Concomitant]
     Route: 055
  4. PREDNISOLONE [Concomitant]
     Route: 048

REACTIONS (1)
  - SPINAL OSTEOARTHRITIS [None]
